FAERS Safety Report 9242948 (Version 1)
Quarter: 2013Q2

REPORT INFORMATION
  Report Type: Spontaneous
  Country: FR (occurrence: FR)
  Receive Date: 20130419
  Receipt Date: 20130419
  Transmission Date: 20140414
  Serious: Yes (Hospitalization)
  Sender: FDA-Public Use
  Company Number: FR-B.I. PHARMACEUTICALS,INC./RIDGEFIELD-2013-FF-01152FF

PATIENT
  Age: 85 Year
  Sex: Male

DRUGS (2)
  1. PRADAXA [Suspect]
     Indication: ATRIAL FIBRILLATION
     Dosage: 220 MG
     Route: 048
  2. HYDREA [Concomitant]
     Indication: THROMBOCYTOSIS
     Route: 048

REACTIONS (7)
  - Jaundice [Recovered/Resolved]
  - Anaemia [Recovered/Resolved]
  - Full blood count decreased [Unknown]
  - Cardiac failure [Unknown]
  - Chronic obstructive pulmonary disease [Unknown]
  - Hepatic enzyme increased [Recovered/Resolved]
  - Hyperbilirubinaemia [Recovered/Resolved]
